FAERS Safety Report 18192962 (Version 1)
Quarter: 2020Q3

REPORT INFORMATION
  Report Type: Spontaneous
  Country: US (occurrence: US)
  Receive Date: 20200825
  Receipt Date: 20200825
  Transmission Date: 20201103
  Serious: No
  Sender: FDA-Public Use
  Company Number: US-ALEXION-A202012166

PATIENT
  Age: 31 Year
  Sex: Female

DRUGS (2)
  1. STRENSIQ [Suspect]
     Active Substance: ASFOTASE ALFA
     Indication: HYPOPHOSPHATASIA
     Dosage: UNK
     Route: 058
     Dates: start: 201906
  2. STRENSIQ [Suspect]
     Active Substance: ASFOTASE ALFA
     Dosage: 144 MG, TIW
     Route: 058

REACTIONS (7)
  - Fatigue [Recovered/Resolved]
  - Injection site warmth [Unknown]
  - Apathy [Recovered/Resolved]
  - Injection site rash [Unknown]
  - Pain [Unknown]
  - Asthenia [Recovered/Resolved]
  - Nausea [Unknown]
